FAERS Safety Report 8082347 (Version 3)
Quarter: 2014Q2

REPORT INFORMATION
  Report Type: Spontaneous
  Country: US (occurrence: US)
  Receive Date: 20110809
  Receipt Date: 20140612
  Transmission Date: 20141212
  Serious: Yes (Hospitalization)
  Sender: FDA-Public Use
  Company Number: US-GLAXOSMITHKLINE-A0861801A

PATIENT
  Age: 47 Year
  Sex: Male
  Weight: 89 kg

DRUGS (1)
  1. AVANDIA [Suspect]
     Indication: DIABETES MELLITUS
     Dosage: 4MG PER DAY
     Route: 048
     Dates: start: 200504, end: 20050921

REACTIONS (6)
  - Cardiac arrest [Not Recovered/Not Resolved]
  - Acute myocardial infarction [Unknown]
  - Coma [Unknown]
  - Hypoxic-ischaemic encephalopathy [Unknown]
  - No therapeutic response [Unknown]
  - Apallic syndrome [Unknown]
